FAERS Safety Report 6771610-1 (Version None)
Quarter: 2010Q2

REPORT INFORMATION
  Report Type: 
  Country: None (occurrence: None)
  Receive Date: 20100616
  Receipt Date: 20100603
  Transmission Date: 20101027
  Serious: Yes (Other)
  Sender: FDA-Public Use
  Company Number: PHHY2010US35729

PATIENT
  Sex: Female
  Weight: 144 kg

DRUGS (2)
  1. DIOVAN [Suspect]
     Indication: HYPERTENSION
     Dosage: 320 MG,QD
     Route: 048
     Dates: start: 20100515, end: 20100526
  2. GLIPIZIDE [Concomitant]
     Indication: DIABETES MELLITUS
     Dosage: 5 MG
     Route: 048

REACTIONS (4)
  - LIP SWELLING [None]
  - PARAESTHESIA ORAL [None]
  - PRURITUS [None]
  - TREATMENT NONCOMPLIANCE [None]
